FAERS Safety Report 13002505 (Version 2)
Quarter: 2017Q1

REPORT INFORMATION
  Report Type: Spontaneous
  Country: FR (occurrence: FR)
  Receive Date: 20161206
  Receipt Date: 20170317
  Transmission Date: 20170428
  Serious: Yes (Death, Hospitalization, Other)
  Sender: FDA-Public Use
  Company Number: FR-IMPAX LABORATORIES, INC-2016-IPXL-02247

PATIENT
  Age: 34 Year
  Sex: Male

DRUGS (9)
  1. DIVALPROEX SODIUM ER [Suspect]
     Active Substance: DIVALPROEX SODIUM
     Dosage: UNK
     Route: 065
  2. TROPATEPINE [Suspect]
     Active Substance: TROPATEPINE
     Dosage: UNK
     Route: 065
     Dates: start: 20120605
  3. TROPATEPINE [Suspect]
     Active Substance: TROPATEPINE
     Indication: PRODUCT USED FOR UNKNOWN INDICATION
     Dosage: 10 MG, DAILY
     Route: 065
  4. LOXAPINE. [Suspect]
     Active Substance: LOXAPINE
     Dosage: 275 MG + 100 MG, PRN
     Route: 048
  5. LOXAPINE. [Suspect]
     Active Substance: LOXAPINE
     Dosage: 100 MG
     Route: 030
     Dates: start: 20120625
  6. DIVALPROEX SODIUM ER [Suspect]
     Active Substance: DIVALPROEX SODIUM
     Indication: PRODUCT USED FOR UNKNOWN INDICATION
     Dosage: 1000 MG, DAILY
     Route: 065
  7. QUETIAPINE. [Suspect]
     Active Substance: QUETIAPINE
     Indication: BIPOLAR DISORDER
     Dosage: 600 MG, DAILY
     Route: 048
     Dates: start: 20120605
  8. DIAZEPAM. [Suspect]
     Active Substance: DIAZEPAM
     Indication: PRODUCT USED FOR UNKNOWN INDICATION
     Dosage: 30 MG, DAILY
     Route: 065
  9. LOXAPINE. [Suspect]
     Active Substance: LOXAPINE
     Indication: AGITATION
     Dosage: 275 MG, DAILY
     Route: 048
     Dates: start: 20120614

REACTIONS (9)
  - Necrotising colitis [Fatal]
  - Sinus arrhythmia [Unknown]
  - Agitation [Unknown]
  - Colonic pseudo-obstruction [Fatal]
  - Gastric haemorrhage [Fatal]
  - Multiple organ dysfunction syndrome [Fatal]
  - Intestinal ischaemia [Fatal]
  - Large intestine perforation [Fatal]
  - Septic shock [Fatal]

NARRATIVE: CASE EVENT DATE: 2012
